FAERS Safety Report 6791036-4 (Version None)
Quarter: 2010Q2

REPORT INFORMATION
  Report Type: 
  Country: None (occurrence: None)
  Receive Date: 20100624
  Receipt Date: 20100618
  Transmission Date: 20101027
  Serious: Yes (Hospitalization, Other)
  Sender: FDA-Public Use
  Company Number: JP-BRISTOL-MYERS SQUIBB COMPANY-14970875

PATIENT
  Age: 64 Year
  Sex: Female
  Weight: 50 kg

DRUGS (3)
  1. MAXIPIME [Suspect]
     Indication: SEPSIS
     Dosage: DISCONTINUED ON 19JAN10 OTHER DOSE: 1G QD IV DRIP
     Route: 041
     Dates: start: 20100117, end: 20100119
  2. MEROPEN [Suspect]
     Indication: SEPSIS
     Dosage: INTERRUPTED ON 17JAN10 OTHER DOSE:0.5G QD IVDRIP
     Route: 041
     Dates: start: 20100113, end: 20100117
  3. VANCOMYCIN [Suspect]
     Indication: SEPSIS
     Dosage: DISCONTINUED ON 19JAN10 THERAPY DATES 12JAN,14JAN + 19JAN2010
     Route: 041
     Dates: start: 20100112, end: 20100119

REACTIONS (3)
  - ALTERED STATE OF CONSCIOUSNESS [None]
  - DYSKINESIA [None]
  - TREMOR [None]
